FAERS Safety Report 19375240 (Version 2)
Quarter: 2021Q4

REPORT INFORMATION
  Report Type: Spontaneous
  Country: EG (occurrence: EG)
  Receive Date: 20210604
  Receipt Date: 20211217
  Transmission Date: 20220303
  Serious: Yes (Hospitalization)
  Sender: FDA-Public Use
  Company Number: EG-PFIZER INC-2021105038

PATIENT
  Age: 61 Year
  Sex: Male

DRUGS (6)
  1. SUTENT [Suspect]
     Active Substance: SUNITINIB MALATE
     Indication: Metastatic renal cell carcinoma
     Dosage: 50 MG, CYCLIC (4 TABS DAILY ON SCHEDULE 4/2)
     Route: 048
     Dates: start: 202101
  2. SUTENT [Suspect]
     Active Substance: SUNITINIB MALATE
     Indication: Metastatic renal cell carcinoma
     Dosage: 37.5 MG, CYCLIC (3 TABS DAILY ON SCHEDULE 4/2)
     Route: 048
  3. XGEVA [Concomitant]
     Active Substance: DENOSUMAB
     Dosage: 120 MG, CYCLIC (EVERY 28 DAYS)
     Route: 058
  4. OSTEOCARE [Concomitant]
     Active Substance: CALCIUM\CHOLECALCIFEROL\MAGNESIUM\ZINC
     Dosage: 1 DF (TAB), DAILY
  5. EPICOZYM [Concomitant]
     Dosage: 125 ML
  6. VITAMIN C WINDMILL [Concomitant]
     Dosage: 1000 MG

REACTIONS (2)
  - Mouth haemorrhage [Recovering/Resolving]
  - Epistaxis [Recovering/Resolving]
